FAERS Safety Report 13125803 (Version 4)
Quarter: 2018Q1

REPORT INFORMATION
  Report Type: Report from Study
  Country: US (occurrence: US)
  Receive Date: 20170118
  Receipt Date: 20180202
  Transmission Date: 20180508
  Serious: Yes (Hospitalization)
  Sender: FDA-Public Use
  Company Number: US-JNJFOC-20161209577

PATIENT
  Age: 85 Year
  Sex: Female

DRUGS (23)
  1. AMOXIL [Concomitant]
     Active Substance: AMOXICILLIN
     Route: 048
  2. LOPID [Concomitant]
     Active Substance: GEMFIBROZIL
  3. IMBRUVICA [Suspect]
     Active Substance: IBRUTINIB
     Indication: CHRONIC LYMPHOCYTIC LEUKAEMIA
     Route: 048
     Dates: start: 20161216
  4. CRESTOR [Concomitant]
     Active Substance: ROSUVASTATIN CALCIUM
  5. NITROSTAT [Concomitant]
     Active Substance: NITROGLYCERIN
     Indication: CHEST PAIN
     Dosage: 1 TABLET UNDER TONGUE
  6. IMBRUVICA [Suspect]
     Active Substance: IBRUTINIB
     Indication: CHRONIC LYMPHOCYTIC LEUKAEMIA
     Route: 048
     Dates: start: 20161219
  7. METOPROLOL SUCCINATE. [Concomitant]
     Active Substance: METOPROLOL SUCCINATE
  8. COLACE [Concomitant]
     Active Substance: DOCUSATE SODIUM
  9. ASPIRIN. [Concomitant]
     Active Substance: ASPIRIN
     Route: 048
  10. FERROUS SULFATE. [Concomitant]
     Active Substance: FERROUS SULFATE
     Dosage: WITH FOOD
     Route: 048
  11. VASOTEC [Concomitant]
     Active Substance: ENALAPRIL MALEATE
     Route: 048
  12. KENALOG [Concomitant]
     Active Substance: TRIAMCINOLONE ACETONIDE
     Indication: RASH
     Dosage: APPLY TO AFFECTED AREA 3 TIMES A DAY AS NEEDED
  13. CELECOXIB. [Suspect]
     Active Substance: CELECOXIB
     Indication: PRODUCT USED FOR UNKNOWN INDICATION
     Route: 065
  14. GLUCOPHAGE [Concomitant]
     Active Substance: METFORMIN HYDROCHLORIDE
     Dosage: 2 TABLETS TWICE A DAY
  15. LANTUS [Concomitant]
     Active Substance: INSULIN GLARGINE
  16. TYLENOL [Concomitant]
     Active Substance: ACETAMINOPHEN
     Indication: ARTHRALGIA
  17. LEVAQUIN [Concomitant]
     Active Substance: LEVOFLOXACIN
  18. ENALAPRIL MALEATE. [Concomitant]
     Active Substance: ENALAPRIL MALEATE
  19. BIAXIN [Concomitant]
     Active Substance: CLARITHROMYCIN
     Route: 048
  20. LOPRESSOR [Concomitant]
     Active Substance: METOPROLOL TARTRATE
  21. JANUVIA [Concomitant]
     Active Substance: SITAGLIPTIN PHOSPHATE
     Dosage: 1 TABLET BY MOUTH ONE TIME PER DAY
  22. PROTONIX [Concomitant]
     Active Substance: PANTOPRAZOLE SODIUM
     Dosage: BEFORE MEAL
     Route: 048
  23. CENTRUM [Concomitant]
     Active Substance: VITAMINS
     Route: 048

REACTIONS (9)
  - Syncope [Recovered/Resolved]
  - Duodenal ulcer haemorrhage [Recovering/Resolving]
  - Ischaemic stroke [Recovered/Resolved]
  - Vomiting [Recovered/Resolved]
  - Iron deficiency anaemia [Recovered/Resolved]
  - Haemorrhagic anaemia [Unknown]
  - Cerebral artery occlusion [Unknown]
  - Diarrhoea [Recovering/Resolving]
  - Thrombocytopenia [Recovering/Resolving]

NARRATIVE: CASE EVENT DATE: 20161218
